FAERS Safety Report 8157865 (Version 3)
Quarter: 2012Q4

REPORT INFORMATION
  Report Type: 
  Country: JP (occurrence: JP)
  Receive Date: 20110927
  Receipt Date: 20121022
  Transmission Date: 20130627
  Serious: Yes (Hospitalization)
  Sender: FDA-Public Use
  Company Number: JP-SANOFI-AVENTIS-2011SA062379

PATIENT
  Age: 67 Year
  Sex: Female
  Weight: 49 kg

DRUGS (10)
  1. FLUOROURACIL [Suspect]
     Indication: CAECAL CANCER
     Dosage: dose : 283.7 mg/m2
     Route: 040
     Dates: start: 20100615, end: 20100616
  2. FLUOROURACIL [Suspect]
     Indication: CAECAL CANCER
     Dosage: dose : 354.6 mg/m2, continuous infusion
     Route: 041
     Dates: start: 20100615, end: 20100616
  3. OXALIPLATIN [Suspect]
     Indication: CAECAL CANCER
     Dosage: dose : 85.1 mg/m2
     Route: 041
     Dates: start: 20100615, end: 20100615
  4. CALCIUM LEVOFOLINATE [Concomitant]
     Indication: COLON CANCER
     Route: 041
     Dates: start: 20100615, end: 20100616
  5. ALOXI [Concomitant]
     Indication: PREMEDICATION
     Route: 041
     Dates: start: 20100615, end: 20100615
  6. GASTER [Concomitant]
     Indication: PREMEDICATION
     Route: 041
     Dates: start: 20100615, end: 20100615
  7. POLARAMINE [Concomitant]
     Indication: PREMEDICATION
     Route: 041
     Dates: start: 20100615, end: 20100615
  8. DEXAMETHASONE [Concomitant]
     Indication: PREMEDICATION
     Route: 041
     Dates: start: 20100615, end: 20100702
  9. OCTREOTIDE [Concomitant]
     Indication: DIARRHEA
     Route: 041
     Dates: start: 20100624, end: 20100629
  10. MEROPEN [Concomitant]
     Indication: DIARRHEA
     Route: 041
     Dates: start: 20100624, end: 20100628

REACTIONS (6)
  - Tumour lysis syndrome [Recovered/Resolved]
  - Renal failure [Recovered/Resolved]
  - Diarrhoea [Recovered/Resolved]
  - Abdominal pain upper [Unknown]
  - Pyrexia [Unknown]
  - Vomiting [Unknown]
